FAERS Safety Report 22276030 (Version 1)
Quarter: 2023Q2

REPORT INFORMATION
  Report Type: Spontaneous
  Country: US (occurrence: US)
  Receive Date: 20230502
  Receipt Date: 20230502
  Transmission Date: 20230721
  Serious: No
  Sender: FDA-Public Use
  Company Number: US-AERIE-2022-002728

PATIENT

DRUGS (2)
  1. ROCKLATAN [Suspect]
     Active Substance: LATANOPROST\NETARSUDIL MESYLATE
     Indication: Product used for unknown indication
     Dosage: 1 GTT, OU, QHS
     Route: 047
     Dates: start: 202105, end: 202111
  2. DUPIXENT [Suspect]
     Active Substance: DUPILUMAB
     Indication: Product used for unknown indication
     Dosage: UNK
     Route: 058
     Dates: start: 202001

REACTIONS (5)
  - Lacrimation increased [Unknown]
  - Eye discharge [Unknown]
  - Visual impairment [Unknown]
  - Eye allergy [Unknown]
  - Intraocular pressure increased [Unknown]
